FAERS Safety Report 4471947-5 (Version None)
Quarter: 2004Q4

REPORT INFORMATION
  Report Type: 
  Country: None (occurrence: None)
  Receive Date: 20041007
  Receipt Date: 20040909
  Transmission Date: 20050328
  Serious: Yes (Other)
  Sender: FDA-Public Use
  Company Number: HQWYE034515SEP04

PATIENT
  Age: 43 Year
  Sex: Female

DRUGS (2)
  1. EFFEXOR XR [Suspect]
     Indication: DEPRESSION
     Dosage: 75 MG 1X PER 1 DAY, ORAL
     Route: 048
     Dates: start: 20040603, end: 20040810
  2. LOETTE (LEVONORGESTREL/ETHYINYL ESTRADIOL) [Concomitant]

REACTIONS (1)
  - PSYCHIATRIC SYMPTOM [None]
